FAERS Safety Report 9197047 (Version 2)
Quarter: 2013Q2

REPORT INFORMATION
  Report Type: Report from Study
  Country: BE (occurrence: BE)
  Receive Date: 20130328
  Receipt Date: 20130408
  Transmission Date: 20140414
  Serious: Yes (Hospitalization)
  Sender: FDA-Public Use
  Company Number: BE-BAYER-2013-038086

PATIENT
  Sex: Male

DRUGS (2)
  1. NEXAVAR [Suspect]
     Indication: HEPATOCELLULAR CARCINOMA
     Dosage: 400 MG, DAILY DOSE
     Dates: start: 20130207, end: 20130320
  2. DUROGESIC [Concomitant]
     Dosage: EVERY 3 DAYS
     Route: 062

REACTIONS (1)
  - Hepatocellular carcinoma [None]
